FAERS Safety Report 24339568 (Version 2)
Quarter: 2024Q3

REPORT INFORMATION
  Report Type: Spontaneous
  Country: PL (occurrence: PL)
  Receive Date: 20240919
  Receipt Date: 20240930
  Transmission Date: 20241017
  Serious: No
  Sender: AMGEN
  Company Number: PL-AMGEN-POLSP2024182438

PATIENT
  Age: 74 Year
  Sex: Male

DRUGS (5)
  1. NPLATE [Suspect]
     Active Substance: ROMIPLOSTIM
     Indication: Product used for unknown indication
     Dosage: 1 MICROGRAM/KILOGRAM, Q2WK (BW)
     Route: 065
  2. NPLATE [Suspect]
     Active Substance: ROMIPLOSTIM
     Dosage: 4 MICROGRAM/KILOGRAM
     Route: 065
  3. NPLATE [Suspect]
     Active Substance: ROMIPLOSTIM
     Dosage: 3 MICROGRAM/KILOGRAM
     Route: 065
  4. AMLODIPINE [Concomitant]
     Active Substance: AMLODIPINE BESYLATE
  5. TELMISARTAN [Concomitant]
     Active Substance: TELMISARTAN

REACTIONS (1)
  - Platelet count abnormal [Unknown]
